FAERS Safety Report 7821514-8 (Version None)
Quarter: 2011Q4

REPORT INFORMATION
  Report Type: 
  Country: None (occurrence: None)
  Receive Date: 20111018
  Receipt Date: 20111011
  Transmission Date: 20120403
  Serious: Yes (Other)
  Sender: FDA-Public Use
  Company Number: PHHY2011GB74019

PATIENT
  Age: 47 Year
  Sex: Male

DRUGS (7)
  1. CLOZAPINE [Interacting]
     Indication: SCHIZOPHRENIA
     Dosage: 450 MG, QD
     Route: 048
  2. CLOZAPINE [Interacting]
     Dosage: 500 MG, QD
     Route: 048
  3. FLUOXETINE [Suspect]
     Dosage: 40 MG, QD
  4. CLOZAPINE [Interacting]
     Dosage: 550 MG, QD
     Route: 048
  5. OMEPRAZOLE [Concomitant]
     Indication: GASTROOESOPHAGEAL REFLUX DISEASE
  6. CLOZAPINE [Interacting]
     Dosage: 300 MG, BID
     Route: 048
     Dates: start: 20090728
  7. HYOSCINE HBR HYT [Concomitant]
     Dosage: 300 UG, UNK
     Dates: start: 20090701

REACTIONS (9)
  - DIARRHOEA [None]
  - COUGH [None]
  - HYPERHIDROSIS [None]
  - DRUG INTERACTION [None]
  - ABDOMINAL PAIN [None]
  - WEIGHT DECREASED [None]
  - LETHARGY [None]
  - BLOOD ALKALINE PHOSPHATASE INCREASED [None]
  - DECREASED APPETITE [None]
